FAERS Safety Report 4784270-6 (Version None)
Quarter: 2005Q3

REPORT INFORMATION
  Report Type: 
  Country: None (occurrence: None)
  Receive Date: 20050928
  Receipt Date: 20050916
  Transmission Date: 20060218
  Serious: Yes (Hospitalization)
  Sender: FDA-Public Use
  Company Number: 212826

PATIENT
  Age: 72 Year
  Sex: Male

DRUGS (11)
  1. XOLAIR [Suspect]
     Indication: ASTHMA
     Dosage: SEE IMAGE
     Route: 058
     Dates: start: 20041104, end: 20041118
  2. XOLAIR [Suspect]
     Indication: ASTHMA
     Dosage: SEE IMAGE
     Route: 058
     Dates: start: 20041204, end: 20041216
  3. XOLAIR [Suspect]
     Indication: ASTHMA
     Dosage: SEE IMAGE
     Route: 058
     Dates: start: 20041230, end: 20041230
  4. XOLAIR [Suspect]
  5. XOLAIR [Suspect]
  6. ADVAIR DISKUS 100/50 [Concomitant]
  7. ALBUTEROL (ALBUTEROL, ALBUTEROL SULFATE) [Concomitant]
  8. AROVENT (IPRATROPIUM BROMIDE) [Concomitant]
  9. PRILOSEC [Concomitant]
  10. SPIRIVA [Concomitant]
  11. FLU VACCINE (INFLUENZA VIRUS VACCINE) [Concomitant]

REACTIONS (2)
  - MYOPERICARDITIS [None]
  - VENTRICULAR DYSFUNCTION [None]
